FAERS Safety Report 10416586 (Version 1)
Quarter: 2014Q3

REPORT INFORMATION
  Report Type: Spontaneous
  Country: US (occurrence: US)
  Receive Date: 20140828
  Receipt Date: 20140828
  Transmission Date: 20150326
  Serious: Yes (Other)
  Sender: FDA-Public Use
  Company Number: PHHY2014US106063

PATIENT
  Age: 8 Year
  Sex: Female

DRUGS (1)
  1. DEFEROXAMINE [Suspect]
     Active Substance: DEFEROXAMINE\DEFEROXAMINE MESYLATE
     Indication: THALASSAEMIA BETA
     Dosage: 3 G, UNK
     Route: 042

REACTIONS (7)
  - Tachycardia [Unknown]
  - Pulse abnormal [Unknown]
  - Depressed level of consciousness [Unknown]
  - Hypotension [Unknown]
  - Face oedema [Unknown]
  - Device malfunction [Unknown]
  - Overdose [Unknown]
